FAERS Safety Report 16472682 (Version 1)
Quarter: 2019Q2

REPORT INFORMATION
  Report Type: Spontaneous
  Country: US (occurrence: US)
  Receive Date: 20190625
  Receipt Date: 20190625
  Transmission Date: 20190711
  Serious: No
  Sender: FDA-Public Use
  Company Number: US-JNJFOC-20190626560

PATIENT
  Sex: Female

DRUGS (2)
  1. CHILDRENS MOTRIN [Suspect]
     Active Substance: IBUPROFEN
     Indication: ARTHRALGIA
     Dosage: QUARTER SIZE AMOUNT
     Route: 061
  2. CHILDRENS MOTRIN [Suspect]
     Active Substance: IBUPROFEN
     Indication: JOINT SWELLING

REACTIONS (3)
  - Therapeutic response unexpected [Unknown]
  - Product administered to patient of inappropriate age [Unknown]
  - Incorrect route of product administration [Unknown]
